FAERS Safety Report 10782521 (Version 1)
Quarter: 2015Q1

REPORT INFORMATION
  Report Type: Spontaneous
  Country: US (occurrence: US)
  Receive Date: 20150210
  Receipt Date: 20150210
  Transmission Date: 20150721
  Serious: No
  Sender: FDA-Public Use
  Company Number: US-GLAXOSMITHKLINE-A1072568A

PATIENT

DRUGS (3)
  1. ALLI [Suspect]
     Active Substance: ORLISTAT
     Indication: WEIGHT DECREASED
     Dates: start: 201304, end: 201405
  2. ALLI [Suspect]
     Active Substance: ORLISTAT
     Dates: start: 201304, end: 201405
  3. ALLI [Suspect]
     Active Substance: ORLISTAT
     Dates: start: 201304, end: 201405

REACTIONS (7)
  - Headache [Recovered/Resolved]
  - Lethargy [Recovering/Resolving]
  - Drug ineffective [Unknown]
  - Ill-defined disorder [Recovered/Resolved]
  - Treatment noncompliance [Recovered/Resolved]
  - Asthenia [Recovering/Resolving]
  - Rectal discharge [Recovered/Resolved]

NARRATIVE: CASE EVENT DATE: 20140430
